FAERS Safety Report 20778133 (Version 2)
Quarter: 2022Q2

REPORT INFORMATION
  Report Type: Report from Study
  Country: US (occurrence: US)
  Receive Date: 20220503
  Receipt Date: 20220602
  Transmission Date: 20220721
  Serious: Yes (Hospitalization)
  Sender: FDA-Public Use
  Company Number: US-NOVARTISPH-NVSC2022US097166

PATIENT
  Sex: Female

DRUGS (1)
  1. PROMACTA [Suspect]
     Active Substance: ELTROMBOPAG OLAMINE
     Indication: Immune thrombocytopenia
     Dosage: 25 MG QD
     Route: 048

REACTIONS (5)
  - Seizure [Unknown]
  - Fall [Unknown]
  - Memory impairment [Unknown]
  - Headache [Unknown]
  - Product dose omission issue [Unknown]
